FAERS Safety Report 24982928 (Version 1)
Quarter: 2025Q1

REPORT INFORMATION
  Report Type: Report from Study
  Country: CA (occurrence: CA)
  Receive Date: 20250218
  Receipt Date: 20250218
  Transmission Date: 20250409
  Serious: Yes (Other)
  Sender: ABBVIE
  Company Number: CA-ABBVIE-6135232

PATIENT
  Age: 71 Year
  Sex: Female

DRUGS (1)
  1. SKYRIZI [Suspect]
     Active Substance: RISANKIZUMAB-RZAA
     Indication: Crohn^s disease
     Route: 058

REACTIONS (6)
  - Fistula [Not Recovered/Not Resolved]
  - Abscess rupture [Unknown]
  - Abdominal hernia [Unknown]
  - Acne [Not Recovered/Not Resolved]
  - Abscess limb [Unknown]
  - Arthralgia [Unknown]

NARRATIVE: CASE EVENT DATE: 20250211
